FAERS Safety Report 5288034-9 (Version None)
Quarter: 2007Q2

REPORT INFORMATION
  Report Type: 
  Country: None (occurrence: None)
  Receive Date: 20070405
  Receipt Date: 20070326
  Transmission Date: 20071010
  Serious: Yes (Hospitalization)
  Sender: FDA-Public Use
  Company Number: PHBS2007CH04526

PATIENT
  Age: 64 Year
  Sex: Female

DRUGS (5)
  1. TRILEPTAL [Suspect]
     Indication: TEMPORAL LOBE EPILEPSY
     Dosage: 300 MG, BID
     Route: 065
  2. TRILEPTAL [Suspect]
     Dosage: 450 MG, BID
     Route: 065
  3. HALDOL [Interacting]
     Dosage: 1 MG, BID
     Route: 065
  4. LAMICTAL [Suspect]
  5. TEMESTA [Suspect]

REACTIONS (5)
  - DELUSION [None]
  - DRUG INTERACTION [None]
  - EPILEPSY [None]
  - HALLUCINATION [None]
  - SOMNOLENCE [None]
